FAERS Safety Report 6793807-7 (Version None)
Quarter: 2010Q2

REPORT INFORMATION
  Report Type: 
  Country: None (occurrence: None)
  Receive Date: 20100624
  Receipt Date: 20090322
  Transmission Date: 20101027
  Serious: No
  Sender: FDA-Public Use
  Company Number: US-PFIZER INC-2009159877

PATIENT
  Sex: Female
  Weight: 87 kg

DRUGS (2)
  1. DEPO-PROVERA [Suspect]
     Dates: start: 20081101
  2. PRENATAL VITAMINS [Concomitant]
     Dosage: UNK

REACTIONS (2)
  - INAPPROPRIATE SCHEDULE OF DRUG ADMINISTRATION [None]
  - METRORRHAGIA [None]
